FAERS Safety Report 9769026 (Version 1)
Quarter: 2013Q4

REPORT INFORMATION
  Report Type: Spontaneous
  Country: CO (occurrence: CO)
  Receive Date: 20131218
  Receipt Date: 20131218
  Transmission Date: 20140711
  Serious: Yes (Other)
  Sender: FDA-Public Use
  Company Number: CO-AMGEN-COLSP2013088552

PATIENT
  Age: 51 Year
  Sex: Female

DRUGS (3)
  1. ENBREL [Suspect]
     Indication: RHEUMATOID ARTHRITIS
     Dosage: 50 MG, WEEKLY
     Route: 058
     Dates: start: 201308, end: 20131118
  2. EUTIROX [Concomitant]
     Indication: THYROID DISORDER
     Dosage: 120 UG, ONCE DAILY
     Route: 048
     Dates: start: 2006
  3. ENALAPRIL [Concomitant]
     Indication: BLOOD PRESSURE ABNORMAL
     Dosage: 5 MG, ONCE DAILY
     Route: 048
     Dates: start: 2008

REACTIONS (2)
  - Bunion [Not Recovered/Not Resolved]
  - Pain [Unknown]
